FAERS Safety Report 8292251-3 (Version None)
Quarter: 2012Q2

REPORT INFORMATION
  Report Type: 
  Country: None (occurrence: None)
  Receive Date: 20120417
  Receipt Date: 20120410
  Transmission Date: 20120825
  Serious: Yes (Hospitalization)
  Sender: FDA-Public Use
  Company Number: NL-MEDIMMUNE-MEDI-0015434

PATIENT
  Sex: Female
  Weight: 4.88 kg

DRUGS (2)
  1. SYNAGIS [Suspect]
     Indication: PREMATURE BABY
     Route: 030
     Dates: start: 20120116, end: 20120312
  2. SYNAGIS [Suspect]
     Route: 030
     Dates: start: 20120410, end: 20120410

REACTIONS (2)
  - DEHYDRATION [None]
  - VIRAL INFECTION [None]
